FAERS Safety Report 23839879 (Version 1)
Quarter: 2024Q2

REPORT INFORMATION
  Report Type: Spontaneous
  Country: US (occurrence: US)
  Receive Date: 20240510
  Receipt Date: 20240510
  Transmission Date: 20240715
  Serious: No
  Sender: FDA-Public Use
  Company Number: US-002147023-NVSC2024US095870

PATIENT

DRUGS (1)
  1. KESIMPTA [Suspect]
     Active Substance: OFATUMUMAB
     Indication: Product used for unknown indication
     Dosage: UNK
     Route: 065

REACTIONS (9)
  - Illness [Unknown]
  - Nasopharyngitis [Unknown]
  - Headache [Unknown]
  - Neck pain [Unknown]
  - Constipation [Unknown]
  - Fatigue [Unknown]
  - Vision blurred [Unknown]
  - Abdominal pain [Unknown]
  - Dizziness [Unknown]
